FAERS Safety Report 9612483 (Version 1)
Quarter: 2013Q4

REPORT INFORMATION
  Report Type: Spontaneous
  Country: US (occurrence: None)
  Receive Date: 20131008
  Receipt Date: 20131008
  Transmission Date: 20140711
  Serious: Yes (Hospitalization)
  Sender: FDA-Public Use
  Company Number: US-013215

PATIENT
  Age: 74 Year
  Sex: Female

DRUGS (9)
  1. MINIRIN [Suspect]
     Indication: DIABETES INSIPIDUS
     Route: 045
  2. COLACE [Concomitant]
  3. LYRICA [Concomitant]
  4. LASIX /00032601/ [Concomitant]
  5. POTASSIUM [Concomitant]
  6. LORAZEPAM [Concomitant]
  7. OMEPRAZOLE [Concomitant]
  8. CALCIUM [Concomitant]
  9. ASPIRIN [Concomitant]

REACTIONS (2)
  - Urinary tract infection [None]
  - Hand deformity [None]
